FAERS Safety Report 4539437-9 (Version None)
Quarter: 2004Q4

REPORT INFORMATION
  Report Type: 
  Country: None (occurrence: None)
  Receive Date: 20041222
  Receipt Date: 20041209
  Transmission Date: 20050328
  Serious: No
  Sender: FDA-Public Use
  Company Number: 2004PK02112

PATIENT
  Age: 66 Year
  Sex: Male
  Weight: 100 kg

DRUGS (7)
  1. ZOLADEX [Suspect]
     Dosage: 10.8 MG SQ
     Route: 058
  2. ANDROCUR [Concomitant]
  3. PRAVASIN [Concomitant]
  4. BELOC ZOK [Concomitant]
  5. DELIX [Concomitant]
  6. DELIX PLUS [Concomitant]
  7. ASPIRIN [Concomitant]

REACTIONS (1)
  - HYPERHIDROSIS [None]
